FAERS Safety Report 6391650-4 (Version None)
Quarter: 2009Q4

REPORT INFORMATION
  Report Type: 
  Country: None (occurrence: None)
  Receive Date: 20091005
  Receipt Date: 20090703
  Transmission Date: 20100525
  Serious: Yes (Other)
  Sender: FDA-Public Use
  Company Number: 8052784

PATIENT
  Age: 32 Year
  Sex: Female

DRUGS (1)
  1. KEPPRA [Suspect]
     Dates: start: 20080601, end: 20080925

REACTIONS (3)
  - ABORTION INDUCED [None]
  - DRUG EXPOSURE DURING PREGNANCY [None]
  - PREGNANCY [None]
